FAERS Safety Report 5570467-4 (Version None)
Quarter: 2007Q4

REPORT INFORMATION
  Report Type: 
  Country: None (occurrence: None)
  Receive Date: 20071221
  Receipt Date: 20070926
  Transmission Date: 20080405
  Serious: No
  Sender: FDA-Public Use
  Company Number: US-BRISTOL-MYERS SQUIBB COMPANY-13920871

PATIENT
  Age: 73 Year
  Sex: Female
  Weight: 88 kg

DRUGS (7)
  1. ORENCIA [Suspect]
     Indication: RHEUMATOID ARTHRITIS
     Route: 042
  2. LIPITOR [Concomitant]
  3. CELEXA [Concomitant]
  4. VICODIN [Concomitant]
  5. PREDNISONE [Concomitant]
  6. METHOTREXATE [Concomitant]
  7. BENICAR [Concomitant]

REACTIONS (4)
  - BONE PAIN [None]
  - LETHARGY [None]
  - OEDEMA PERIPHERAL [None]
  - PAIN IN EXTREMITY [None]
